FAERS Safety Report 7441196-7 (Version None)
Quarter: 2011Q2

REPORT INFORMATION
  Report Type: 
  Country: None (occurrence: None)
  Receive Date: 20110428
  Receipt Date: 20110413
  Transmission Date: 20111010
  Serious: No
  Sender: FDA-Public Use
  Company Number: US-BIOGENIDEC-2010BI028067

PATIENT
  Sex: Female

DRUGS (1)
  1. TYSABRI [Suspect]
     Indication: MULTIPLE SCLEROSIS
     Route: 042
     Dates: start: 20090422

REACTIONS (6)
  - CHANGE OF BOWEL HABIT [None]
  - BLADDER DISORDER [None]
  - TENDON RUPTURE [None]
  - POOR VENOUS ACCESS [None]
  - MEMORY IMPAIRMENT [None]
  - URTICARIA [None]
